FAERS Safety Report 12736026 (Version 1)
Quarter: 2016Q3

REPORT INFORMATION
  Report Type: Spontaneous
  Country: IT (occurrence: IT)
  Receive Date: 20160913
  Receipt Date: 20160913
  Transmission Date: 20161109
  Serious: Yes (Hospitalization)
  Sender: FDA-Public Use
  Company Number: IT-ACCORD-043867

PATIENT
  Age: 54 Year
  Sex: Female
  Weight: 50 kg

DRUGS (7)
  1. SOLDESAM [Concomitant]
     Active Substance: DEXAMETHASONE
     Indication: INFLAMMATION
     Route: 042
     Dates: start: 20160718, end: 20160718
  2. ONDANSETRON [Concomitant]
     Active Substance: ONDANSETRON
     Indication: PREMEDICATION
     Route: 042
     Dates: start: 20160718, end: 20160718
  3. DOCETAXEL ACCORD [Suspect]
     Active Substance: DOCETAXEL
     Indication: BREAST CANCER STAGE IV
     Route: 042
     Dates: start: 20160718, end: 20160718
  4. PERJETA [Concomitant]
     Active Substance: PERTUZUMAB
     Indication: BREAST CANCER STAGE IV
     Route: 042
     Dates: start: 20160718, end: 20160718
  5. HERCEPTIN [Concomitant]
     Active Substance: TRASTUZUMAB
     Indication: BREAST CANCER STAGE IV
     Route: 042
     Dates: start: 20160718
  6. RANITIDINE. [Concomitant]
     Active Substance: RANITIDINE
     Indication: PREMEDICATION
     Route: 042
     Dates: start: 20160718, end: 20160718
  7. ZARZIO [Concomitant]
     Active Substance: FILGRASTIM
     Indication: ANAEMIA PROPHYLAXIS
     Route: 058
     Dates: start: 20160720, end: 20160721

REACTIONS (3)
  - Dermatitis [Recovered/Resolved]
  - Oral mucosa erosion [Recovered/Resolved]
  - Stevens-Johnson syndrome [Unknown]

NARRATIVE: CASE EVENT DATE: 20160720
